FAERS Safety Report 4522530-4 (Version None)
Quarter: 2004Q4

REPORT INFORMATION
  Report Type: 
  Country: None (occurrence: None)
  Receive Date: 20041207
  Receipt Date: 20041122
  Transmission Date: 20050328
  Serious: No
  Sender: FDA-Public Use
  Company Number: 2004GB02812

PATIENT
  Age: 64 Year
  Sex: Female
  Weight: 89.8 kg

DRUGS (5)
  1. CRESTOR [Suspect]
     Indication: BLOOD CHOLESTEROL INCREASED
     Dosage: 10 MG PO
     Route: 048
     Dates: start: 20040915, end: 20041029
  2. DICLOFENAC [Concomitant]
  3. MOVICOL [Concomitant]
  4. ALBUTEROL [Concomitant]
  5. SERETIDE  ALLEN + HANBURYS LTD [Concomitant]

REACTIONS (8)
  - ASTHMA [None]
  - CHEST PAIN [None]
  - CONSTIPATION [None]
  - CONTUSION [None]
  - DYSPEPSIA [None]
  - HEADACHE [None]
  - MYALGIA [None]
  - NECK PAIN [None]
